FAERS Safety Report 4732695-7 (Version None)
Quarter: 2005Q3

REPORT INFORMATION
  Report Type: 
  Country: None (occurrence: None)
  Receive Date: 20050801
  Receipt Date: 20050719
  Transmission Date: 20060218
  Serious: Yes (Hospitalization)
  Sender: FDA-Public Use
  Company Number: 200510480BFR

PATIENT
  Age: 70 Year
  Sex: Male
  Weight: 93 kg

DRUGS (8)
  1. MOXIFLOXACIN HYDROCHLORIDE [Suspect]
     Indication: BRONCHITIS
     Dosage: QD, ORAL
     Route: 048
     Dates: start: 20050401, end: 20050410
  2. ACARBOSE [Suspect]
     Dosage: 150 MG, TOTAL DAILY, ORAL
     Route: 048
     Dates: start: 20010101
  3. LEVOTHYROX [Concomitant]
  4. AMAREL [Concomitant]
  5. NISIS [Concomitant]
  6. ALLOPURINOL [Concomitant]
  7. LOGIMAX [Concomitant]
  8. TAHOR [Concomitant]

REACTIONS (3)
  - LUNG NEOPLASM MALIGNANT [None]
  - PEMPHIGOID [None]
  - PEMPHIGUS [None]
